FAERS Safety Report 17529552 (Version 1)
Quarter: 2020Q1

REPORT INFORMATION
  Report Type: Spontaneous
  Country: CA (occurrence: CA)
  Receive Date: 20200311
  Receipt Date: 20200311
  Transmission Date: 20200409
  Serious: Yes (Hospitalization)
  Sender: FDA-Public Use
  Company Number: CA-TEVA-2020-CA-1198665

PATIENT
  Age: 68 Year
  Sex: Male
  Weight: 66 kg

DRUGS (15)
  1. PANTOPRAZOLE [Concomitant]
     Active Substance: PANTOPRAZOLE
  2. ROSUVASTATIN. [Concomitant]
     Active Substance: ROSUVASTATIN
  3. VITAMIN D [Concomitant]
     Active Substance: VITAMIN D NOS
  4. DICLOFENAC [Concomitant]
     Active Substance: DICLOFENAC
  5. FOLIC ACID. [Concomitant]
     Active Substance: FOLIC ACID
  6. SULFASALAZINE. [Concomitant]
     Active Substance: SULFASALAZINE
  7. PREDNISONE. [Concomitant]
     Active Substance: PREDNISONE
  8. BISOPROLOL [Concomitant]
     Active Substance: BISOPROLOL
  9. FUROSEMIDE. [Concomitant]
     Active Substance: FUROSEMIDE
  10. SULFAMETHOXAZOLE/TRIMETHOPRIM [Suspect]
     Active Substance: SULFAMETHOXAZOLE\TRIMETHOPRIM
     Indication: ANTIFUNGAL PROPHYLAXIS
     Route: 065
  11. METHOTREXATE. [Interacting]
     Active Substance: METHOTREXATE
     Indication: RHEUMATOID ARTHRITIS
     Dosage: 10 MILLIGRAM DAILY;
     Route: 048
  12. ACETYLSALICYLIC ACID [Concomitant]
     Active Substance: ASPIRIN
  13. CALCIUM [Concomitant]
     Active Substance: CALCIUM
  14. MAVIK [Concomitant]
     Active Substance: TRANDOLAPRIL
  15. SEPTRA [Concomitant]
     Active Substance: SULFAMETHOXAZOLE\TRIMETHOPRIM
     Route: 042

REACTIONS (6)
  - Vomiting [Recovered/Resolved]
  - Dysgeusia [Recovered/Resolved]
  - Acute kidney injury [Recovered/Resolved]
  - Bicytopenia [Recovered/Resolved]
  - Drug interaction [Recovered/Resolved]
  - Thrombocytopenia [Recovered/Resolved]
